FAERS Safety Report 5085714-5 (Version None)
Quarter: 2006Q3

REPORT INFORMATION
  Report Type: 
  Country: None (occurrence: None)
  Receive Date: 20060822
  Receipt Date: 20060811
  Transmission Date: 20061208
  Serious: Yes (Other)
  Sender: FDA-Public Use
  Company Number: JP-ROCHE-459737

PATIENT
  Age: 49 Year
  Sex: Male
  Weight: 72 kg

DRUGS (8)
  1. ROCEPHIN [Suspect]
     Route: 041
     Dates: start: 20060702, end: 20060720
  2. AVELOX [Suspect]
     Route: 048
     Dates: start: 20060711, end: 20060715
  3. AVELOX [Suspect]
     Route: 048
     Dates: start: 20060720, end: 20060722
  4. LOXONIN [Concomitant]
     Route: 048
     Dates: start: 20060702, end: 20060725
  5. DASEN [Concomitant]
     Route: 048
     Dates: start: 20060702, end: 20060725
  6. PL [Concomitant]
     Route: 048
     Dates: start: 20060702, end: 20060725
  7. ADALAT [Concomitant]
     Route: 048
     Dates: start: 20060702
  8. MEIACT [Concomitant]
     Route: 048
     Dates: start: 20060704, end: 20060708

REACTIONS (2)
  - LEUKOCYTOCLASTIC VASCULITIS [None]
  - TOXIC SKIN ERUPTION [None]
